FAERS Safety Report 9699182 (Version 1)
Quarter: 2013Q4

REPORT INFORMATION
  Report Type: Spontaneous
  Country: US (occurrence: US)
  Receive Date: 20131120
  Receipt Date: 20131120
  Transmission Date: 20140711
  Serious: No
  Sender: FDA-Public Use
  Company Number: US-GILEAD-2008-0015070

PATIENT
  Age: 77 Year
  Sex: Female
  Weight: 64.41 kg

DRUGS (10)
  1. LETAIRIS [Suspect]
     Indication: PULMONARY ARTERIAL HYPERTENSION
     Route: 048
     Dates: start: 20070930
  2. REVATIO [Concomitant]
     Indication: PULMONARY ARTERIAL HYPERTENSION
     Route: 048
  3. TRIAMTERENE [Concomitant]
     Indication: ESSENTIAL HYPERTENSION
     Route: 048
  4. CLONIDINE HCL [Concomitant]
     Indication: ESSENTIAL HYPERTENSION
     Route: 048
  5. ATENOLOL [Concomitant]
     Indication: ESSENTIAL HYPERTENSION
     Route: 048
  6. CARTIA XL [Concomitant]
     Indication: ESSENTIAL HYPERTENSION
     Route: 048
  7. PREDNISONE [Concomitant]
     Indication: PULMONARY ARTERIAL HYPERTENSION
     Dosage: EVERY OTHER DAY
     Route: 048
  8. LEVOTHYROXINE [Concomitant]
     Indication: HYPOTHYROIDISM
     Route: 048
  9. FOSAMAX [Concomitant]
     Indication: OSTEOPOROSIS
     Route: 048
  10. PROMETHAZINE [Concomitant]
     Indication: NAUSEA
     Route: 048

REACTIONS (2)
  - Oedema peripheral [Not Recovered/Not Resolved]
  - Flushing [Not Recovered/Not Resolved]
